FAERS Safety Report 17894928 (Version 4)
Quarter: 2020Q3

REPORT INFORMATION
  Report Type: Spontaneous
  Country: IT (occurrence: IT)
  Receive Date: 20200615
  Receipt Date: 20200807
  Transmission Date: 20201103
  Serious: Yes (Hospitalization, Other)
  Sender: FDA-Public Use
  Company Number: IT-ACCORD-184938

PATIENT
  Age: 64 Year
  Sex: Male
  Weight: 78 kg

DRUGS (9)
  1. DEXAMETHASONE. [Concomitant]
     Active Substance: DEXAMETHASONE
     Dates: start: 20160215, end: 20160215
  2. OXALIPLATIN. [Suspect]
     Active Substance: OXALIPLATIN
     Indication: COLORECTAL CANCER STAGE III
     Dates: start: 20160215, end: 20160215
  3. GLUCOSE/GLUCOSE MONOHYDRATE/GLUCOSE OXIDASE [Suspect]
     Active Substance: DEXTROSE
     Indication: COLORECTAL CANCER STAGE III
     Dosage: WITH PREVIOUS CYCLES OF XELOX, 5%
     Dates: start: 20160104
  4. GLUCOSE [Suspect]
     Active Substance: DEXTROSE
     Indication: COLORECTAL CANCER STAGE III
     Dosage: WITH OXALIPLATIN 250 MG
     Dates: start: 20160215, end: 20160215
  5. OXALIPLATIN. [Suspect]
     Active Substance: OXALIPLATIN
     Indication: COLORECTAL CANCER STAGE III
     Dates: start: 20160104
  6. GLUCOSE [Suspect]
     Active Substance: DEXTROSE
     Indication: COLORECTAL CANCER STAGE III
     Dosage: WITH DRUGS INFUSED
     Dates: start: 20160215, end: 20160215
  7. ONDANSETRON [Concomitant]
     Active Substance: ONDANSETRON
     Dates: start: 20160215, end: 20160215
  8. CAPECITABINE. [Suspect]
     Active Substance: CAPECITABINE
     Indication: COLORECTAL CANCER STAGE III
     Dates: start: 20160104
  9. GLUCOSE [Suspect]
     Active Substance: DEXTROSE
     Indication: COLORECTAL CANCER STAGE III
     Dosage: WASH
     Dates: start: 20160215, end: 20160215

REACTIONS (4)
  - Hypokalaemia [Recovered/Resolved]
  - Diarrhoea [Recovered/Resolved]
  - Peripheral sensory neuropathy [Unknown]
  - Peripheral motor neuropathy [Recovered/Resolved]

NARRATIVE: CASE EVENT DATE: 201601
